FAERS Safety Report 10401395 (Version 3)
Quarter: 2014Q4

REPORT INFORMATION
  Report Type: Report from Study
  Country: CA (occurrence: CA)
  Receive Date: 20140822
  Receipt Date: 20141024
  Transmission Date: 20150528
  Serious: Yes (Other)
  Sender: FDA-Public Use
  Company Number: CA-BRISTOL-MYERS SQUIBB COMPANY-21305784

PATIENT
  Age: 69 Year
  Sex: Female

DRUGS (16)
  1. FOLIC ACID. [Concomitant]
     Active Substance: FOLIC ACID
  2. HYDROCHLOROTHIAZIDE. [Concomitant]
     Active Substance: HYDROCHLOROTHIAZIDE
  3. ORENCIA [Suspect]
     Active Substance: ABATACEPT
     Indication: RHEUMATOID ARTHRITIS
     Dosage: LAST INFUSION ON 13-JUN-2014
     Route: 042
     Dates: start: 20100223
  4. PREDNISONE. [Concomitant]
     Active Substance: PREDNISONE
  5. LIPITOR [Concomitant]
     Active Substance: ATORVASTATIN CALCIUM
  6. CALCIUM [Concomitant]
     Active Substance: CALCIUM
  7. OMEPRAZOLE. [Concomitant]
     Active Substance: OMEPRAZOLE
  8. ACTONEL [Concomitant]
     Active Substance: RISEDRONATE SODIUM
  9. SYNTHROID [Concomitant]
     Active Substance: LEVOTHYROXINE SODIUM
  10. ASAPHEN [Concomitant]
     Active Substance: ASPIRIN
  11. SUPEUDOL [Concomitant]
     Active Substance: OXYCODONE HYDROCHLORIDE
  12. OXYBUTYNIN [Concomitant]
     Active Substance: OXYBUTYNIN
  13. OXYCONTIN [Concomitant]
     Active Substance: OXYCODONE HYDROCHLORIDE
  14. ACETAMINOPHEN. [Concomitant]
     Active Substance: ACETAMINOPHEN
  15. METHOTREXATE [Concomitant]
     Active Substance: METHOTREXATE
  16. LYRICA [Concomitant]
     Active Substance: PREGABALIN

REACTIONS (2)
  - Blood urine present [Unknown]
  - Bladder cancer [Unknown]
